FAERS Safety Report 10482089 (Version 1)
Quarter: 2014Q3

REPORT INFORMATION
  Report Type: Spontaneous
  Country: GB (occurrence: GB)
  Receive Date: 20140929
  Receipt Date: 20140929
  Transmission Date: 20150326
  Serious: Yes (Hospitalization)
  Sender: FDA-Public Use
  Company Number: GB-TEVA-510783ISR

PATIENT
  Age: 54 Year
  Sex: Male

DRUGS (3)
  1. TRAZODONE [Suspect]
     Active Substance: TRAZODONE HYDROCHLORIDE
     Dosage: 250 MILLIGRAM DAILY;
     Route: 048
     Dates: start: 201406
  2. CLOZAPINE. [Concomitant]
     Active Substance: CLOZAPINE
     Dates: start: 2002
  3. ZOPICLONE [Concomitant]
     Active Substance: ZOPICLONE

REACTIONS (1)
  - Neutropenia [Recovered/Resolved]
